FAERS Safety Report 22281845 (Version 9)
Quarter: 2023Q4

REPORT INFORMATION
  Report Type: Spontaneous
  Country: US (occurrence: US)
  Receive Date: 20230504
  Receipt Date: 20231108
  Transmission Date: 20240110
  Serious: Yes (Other)
  Sender: FDA-Public Use
  Company Number: US-GLAXOSMITHKLINE-US2023AMR062126

PATIENT

DRUGS (4)
  1. ZEJULA [Suspect]
     Active Substance: NIRAPARIB
     Indication: Ovarian cancer
     Dosage: 200 MG, QD
  2. ZEJULA [Suspect]
     Active Substance: NIRAPARIB
     Indication: Metastases to abdominal cavity
     Dosage: 100 MG, QD
  3. ZEJULA [Suspect]
     Active Substance: NIRAPARIB
     Indication: Metastases to abdominal cavity
     Dosage: 100 MG, QD
  4. LOSARTAN [Concomitant]
     Active Substance: LOSARTAN
     Indication: Hypertension
     Dosage: UNK

REACTIONS (8)
  - Recurrent cancer [Unknown]
  - Nausea [Recovering/Resolving]
  - Constipation [Recovering/Resolving]
  - Dry eye [Unknown]
  - Illness [Unknown]
  - Blood glucose increased [Unknown]
  - Blood pressure increased [Recovering/Resolving]
  - Drug ineffective [Unknown]
